FAERS Safety Report 16671963 (Version 1)
Quarter: 2019Q3

REPORT INFORMATION
  Report Type: Spontaneous
  Country: US (occurrence: US)
  Receive Date: 20190806
  Receipt Date: 20190806
  Transmission Date: 20191004
  Serious: No
  Sender: FDA-Public Use
  Company Number: US-JNJFOC-20190800960

PATIENT

DRUGS (1)
  1. TYLENOL EXTRA STRENGTH [Suspect]
     Active Substance: ACETAMINOPHEN
     Indication: TUMOUR PAIN
     Dosage: ONE EVERY HOUR WHEN FEEL PAIN
     Route: 065

REACTIONS (3)
  - Inappropriate schedule of product administration [Unknown]
  - Abnormal faeces [Unknown]
  - Incorrect dose administered [Unknown]
